FAERS Safety Report 10900493 (Version 1)
Quarter: 2015Q1

REPORT INFORMATION
  Report Type: Report from Study
  Country: US (occurrence: US)
  Receive Date: 20150310
  Receipt Date: 20150310
  Transmission Date: 20150721
  Serious: No
  Sender: FDA-Public Use
  Company Number: US-AMGEN-USASL2015020866

PATIENT
  Age: 71 Year
  Sex: Male
  Weight: 190 kg

DRUGS (1)
  1. ENBREL [Suspect]
     Active Substance: ETANERCEPT
     Indication: RHEUMATOID ARTHRITIS
     Dosage: 50 MG, QWK
     Route: 058
     Dates: start: 20150220

REACTIONS (7)
  - Influenza [Unknown]
  - Cough [Unknown]
  - Paranasal sinus hypersecretion [Unknown]
  - Chills [Unknown]
  - Nasopharyngitis [Unknown]
  - Respiratory tract congestion [Unknown]
  - Pyrexia [Unknown]

NARRATIVE: CASE EVENT DATE: 20150220
